FAERS Safety Report 5904227-9 (Version None)
Quarter: 2008Q3

REPORT INFORMATION
  Report Type: 
  Country: None (occurrence: None)
  Receive Date: 20080930
  Receipt Date: 20080930
  Transmission Date: 20090109
  Serious: Yes (Hospitalization)
  Sender: FDA-Public Use
  Company Number: None

PATIENT
  Age: 53 Year
  Sex: Female
  Weight: 90.6 kg

DRUGS (16)
  1. DOXORUBICIN HCL [Suspect]
     Indication: BREAST CANCER STAGE III
     Dosage: 111 MG EVERY 2 WEEKS IV
     Route: 042
     Dates: start: 20080818, end: 20080916
  2. CYCLOPHOSPHAMIDE [Suspect]
     Dosage: 1110 MG EVERY 2 WEEKS IV
     Route: 042
     Dates: start: 20080818, end: 20080916
  3. DECADRON [Concomitant]
  4. EMEND TRI-PACK [Concomitant]
  5. ZOFRAN [Concomitant]
  6. ALBUTEROL [Concomitant]
  7. BEADRYL [Concomitant]
  8. VICODIN [Concomitant]
  9. MOTRIN [Concomitant]
  10. NEULASTA [Concomitant]
  11. NASONEX [Concomitant]
  12. PRAVASTATIN [Concomitant]
  13. TYLENOL ES [Concomitant]
  14. ZANTAC [Concomitant]
  15. SENOKOT [Concomitant]
  16. COLACE [Concomitant]

REACTIONS (4)
  - ANXIETY [None]
  - DYSPNOEA [None]
  - INSOMNIA [None]
  - NAUSEA [None]
